FAERS Safety Report 21118733 (Version 1)
Quarter: 2022Q3

REPORT INFORMATION
  Report Type: Spontaneous
  Country: ES (occurrence: ES)
  Receive Date: 20220722
  Receipt Date: 20220722
  Transmission Date: 20221026
  Serious: Yes (Hospitalization)
  Sender: FDA-Public Use
  Company Number: None

PATIENT
  Age: 86 Year
  Sex: Male

DRUGS (3)
  1. CLOPIDOGREL [Suspect]
     Active Substance: CLOPIDOGREL BISULFATE
     Indication: Cerebrovascular accident
     Dosage: STRENGTH: 75 MG, UNIT DOSE: 75 MG, FREQUENCY TIME : 24 HR
     Dates: start: 20200504, end: 20220702
  2. DESFESOTERODINE SUCCINATE [Concomitant]
     Active Substance: DESFESOTERODINE SUCCINATE
     Indication: Product used for unknown indication
     Dosage: STRENGTH: 7 MG , 28 TABLETS, UNIT DOSE :7 MG, FREQUENCY TIME : 24 HRS
     Dates: start: 20220421
  3. TRAZODONE [Concomitant]
     Active Substance: TRAZODONE HYDROCHLORIDE
     Indication: Product used for unknown indication
     Dosage: TRAZODONA 100 MG TABLET, UNIT DOSE: 100 MG, FREQUENCY TIME : 24 HRS
     Dates: start: 20220615

REACTIONS (1)
  - Lower gastrointestinal haemorrhage [Recovering/Resolving]

NARRATIVE: CASE EVENT DATE: 20220702
